FAERS Safety Report 5967437-0 (Version None)
Quarter: 2008Q4

REPORT INFORMATION
  Report Type: 
  Country: None (occurrence: None)
  Receive Date: 20081125
  Receipt Date: 20081118
  Transmission Date: 20090506
  Serious: Yes (Death)
  Sender: FDA-Public Use
  Company Number: DE-GENENTECH-272106

PATIENT

DRUGS (4)
  1. ACTIVASE [Suspect]
     Indication: ACUTE MYOCARDIAL INFARCTION
     Dosage: 50 MG, UNK
  2. ACTIVASE [Suspect]
     Dosage: 10 A?G/KG, UNK
     Route: 040
  3. TIROFIBAN [Suspect]
     Indication: ACUTE MYOCARDIAL INFARCTION
     Dosage: 10 A?GKGMN, UNK
     Route: 040
  4. TIROFIBAN [Suspect]
     Dosage: 0.15 A?GKGMN, UNK

REACTIONS (1)
  - DEATH [None]
